FAERS Safety Report 8365856-9 (Version None)
Quarter: 2012Q2

REPORT INFORMATION
  Report Type: 
  Country: None (occurrence: None)
  Receive Date: 20120515
  Receipt Date: 20120508
  Transmission Date: 20120825
  Serious: Yes (Life-Threatening, Hospitalization)
  Sender: FDA-Public Use
  Company Number: 2012S1000565

PATIENT
  Sex: Female

DRUGS (1)
  1. ALIPZA (PITAVASTATIN) [Suspect]
     Indication: HYPERCHOLESTEROLAEMIA

REACTIONS (1)
  - RENAL FAILURE [None]
